FAERS Safety Report 20540296 (Version 1)
Quarter: 2022Q1

REPORT INFORMATION
  Report Type: Other
  Country: US (occurrence: None)
  Receive Date: 20220302
  Receipt Date: 20220302
  Transmission Date: 20220424
  Serious: Yes (Other)
  Sender: FDA-Public Use
  Company Number: US-ROCHE-3035350

PATIENT
  Sex: Female
  Weight: 47.216 kg

DRUGS (10)
  1. XOLAIR [Suspect]
     Active Substance: OMALIZUMAB
     Indication: Asthma
     Dosage: INJECT 300MG SUBCUTANEOUSLY EVERY 4 WEEK(S)
     Route: 058
  2. XOLAIR [Suspect]
     Active Substance: OMALIZUMAB
  3. XOLAIR [Suspect]
     Active Substance: OMALIZUMAB
     Indication: Asthma
  4. XOLAIR [Suspect]
     Active Substance: OMALIZUMAB
  5. CARTIA (UNITED STATES) [Concomitant]
  6. HYDROCHLOROTHIAZIDE [Concomitant]
     Active Substance: HYDROCHLOROTHIAZIDE
  7. ADVAIR HFA [Concomitant]
     Active Substance: FLUTICASONE PROPIONATE\SALMETEROL XINAFOATE
  8. ALBUTEROL [Concomitant]
     Active Substance: ALBUTEROL
  9. MIRALAX [Concomitant]
     Active Substance: POLYETHYLENE GLYCOL 3350
  10. DICYCLOMINE [Concomitant]
     Active Substance: DICYCLOMINE HYDROCHLORIDE

REACTIONS (18)
  - Impaired gastric emptying [Unknown]
  - Hypokalaemia [Unknown]
  - Transient ischaemic attack [Unknown]
  - Atrial tachycardia [Unknown]
  - Diastolic dysfunction [Unknown]
  - Chest pain [Unknown]
  - Essential hypertension [Unknown]
  - Leukocytosis [Unknown]
  - Abdominal pain lower [Unknown]
  - Lower urinary tract symptoms [Unknown]
  - Scoliosis [Unknown]
  - Spinal osteoarthritis [Unknown]
  - Lumbar radiculopathy [Unknown]
  - Depression [Unknown]
  - Dermatitis [Unknown]
  - Conjunctivitis allergic [Unknown]
  - Senile osteoporosis [Unknown]
  - Sleep apnoea syndrome [Unknown]
